FAERS Safety Report 6448122-8 (Version None)
Quarter: 2009Q4

REPORT INFORMATION
  Report Type: 
  Country: None (occurrence: None)
  Receive Date: 20091120
  Receipt Date: 20091020
  Transmission Date: 20100525
  Serious: No
  Sender: FDA-Public Use
  Company Number: US-BAYER-200937231NA

PATIENT
  Sex: Female

DRUGS (1)
  1. YAZ [Suspect]
     Indication: DRUG USE FOR UNKNOWN INDICATION
     Dates: end: 20090801

REACTIONS (3)
  - ADVERSE DRUG REACTION [None]
  - MENSTRUATION DELAYED [None]
  - WEIGHT INCREASED [None]
